FAERS Safety Report 8475205-3 (Version None)
Quarter: 2012Q2

REPORT INFORMATION
  Report Type: 
  Country: None (occurrence: None)
  Receive Date: 20120628
  Receipt Date: 20120619
  Transmission Date: 20120825
  Serious: Yes (Other)
  Sender: FDA-Public Use
  Company Number: US-JNJFOC-20120312984

PATIENT
  Sex: Female

DRUGS (7)
  1. LEVOTHYROXINE SODIUM [Suspect]
     Indication: HYPOTHYROIDISM
     Route: 065
  2. REMICADE [Suspect]
     Dosage: (1/09-3/09)
     Route: 042
     Dates: start: 20080101, end: 20090101
  3. REMICADE [Suspect]
     Route: 042
     Dates: start: 20090101, end: 20110101
  4. VITAMINS NOS [Concomitant]
     Route: 065
  5. REMICADE [Suspect]
     Indication: RHEUMATOID ARTHRITIS
     Route: 042
     Dates: start: 20030101, end: 20080101
  6. ACTONEL [Suspect]
     Indication: OSTEOPOROSIS
     Route: 065
  7. LANOXIN [Suspect]
     Indication: PRODUCT USED FOR UNKNOWN INDICATION
     Route: 065

REACTIONS (2)
  - GLAUCOMA [None]
  - MACULAR DEGENERATION [None]
